FAERS Safety Report 5905298-6 (Version None)
Quarter: 2008Q4

REPORT INFORMATION
  Report Type: 
  Country: None (occurrence: None)
  Receive Date: 20081001
  Receipt Date: 20080918
  Transmission Date: 20090506
  Serious: No
  Sender: FDA-Public Use
  Company Number: US-B.I. PHARMACEUTICALS,INC./RIDGEFIELD-2008-BP-14659BP

PATIENT
  Age: 43 Year
  Sex: Female

DRUGS (3)
  1. ZANTAC 150 [Suspect]
     Indication: THROAT TIGHTNESS
     Dosage: 300MG
     Route: 048
     Dates: start: 20080916
  2. ZANTAC 150 [Suspect]
     Indication: GASTRIC DISORDER
  3. MIRALAX [Concomitant]
     Route: 048

REACTIONS (2)
  - DIARRHOEA [None]
  - ERUCTATION [None]
